FAERS Safety Report 20207183 (Version 5)
Quarter: 2023Q4

REPORT INFORMATION
  Report Type: Spontaneous
  Country: US (occurrence: US)
  Receive Date: 20211220
  Receipt Date: 20231211
  Transmission Date: 20240109
  Serious: Yes (Hospitalization, Other)
  Sender: FDA-Public Use
  Company Number: US-PFIZER INC-202101253464

PATIENT
  Age: 79 Year
  Sex: Female

DRUGS (2)
  1. XELJANZ XR [Suspect]
     Active Substance: TOFACITINIB CITRATE
     Dosage: 11 MG
  2. XELJANZ XR [Suspect]
     Active Substance: TOFACITINIB CITRATE
     Dosage: 11 MG, 1X/DAY
     Dates: end: 20231202

REACTIONS (11)
  - Hypotension [Unknown]
  - Pharyngeal swelling [Unknown]
  - Pneumonia [Unknown]
  - Arthritis [Unknown]
  - Hypoacusis [Unknown]
  - Memory impairment [Unknown]
  - Hypertension [Unknown]
  - Dysphagia [Unknown]
  - Infection [Unknown]
  - Nausea [Unknown]
  - Respiratory syncytial virus infection [Unknown]

NARRATIVE: CASE EVENT DATE: 20230101
